FAERS Safety Report 8968005 (Version 1)
Quarter: 2012Q4

REPORT INFORMATION
  Report Type: 
  Country: FR (occurrence: FR)
  Receive Date: 20121218
  Receipt Date: 20121218
  Transmission Date: 20130627
  Serious: Yes (Hospitalization, Other)
  Sender: FDA-Public Use
  Company Number: FR-GENZYME-THYM-1003546

PATIENT
  Age: 14 Year
  Sex: Female

DRUGS (6)
  1. THYMOGLOBULINE [Suspect]
     Indication: ACUTE LYMPHOCYTIC LEUKAEMIA
     Dosage: 1 mg/kg, (day 1-4)
     Route: 042
     Dates: start: 20110515
  2. THYMOGLOBULINE [Suspect]
     Dosage: 2.5 mg/kg, (day 3 and day 2)
     Route: 065
  3. FLUDARA [Suspect]
     Indication: ACUTE LYMPHOCYTIC LEUKAEMIA
     Dosage: UNK
     Route: 065
     Dates: start: 201105
  4. BUSULFAN [Concomitant]
     Indication: ACUTE LYMPHOCYTIC LEUKAEMIA
     Dosage: UNK
     Route: 065
     Dates: start: 201105
  5. CYCLOPHOSPHAMIDE [Concomitant]
     Indication: ACUTE LYMPHOCYTIC LEUKAEMIA
     Dosage: UNK, day 3
     Route: 065
     Dates: start: 201105
  6. DASATINIB [Concomitant]
     Indication: PRODUCT USED FOR UNKNOWN INDICATION
     Dosage: UNK
     Route: 065

REACTIONS (3)
  - Drug-induced liver injury [Recovered/Resolved]
  - Hepatic failure [Unknown]
  - Disseminated intravascular coagulation [Unknown]
